FAERS Safety Report 24942343 (Version 1)
Quarter: 2025Q1

REPORT INFORMATION
  Report Type: Spontaneous
  Country: JP (occurrence: JP)
  Receive Date: 20250207
  Receipt Date: 20250207
  Transmission Date: 20250409
  Serious: Yes (Hospitalization)
  Sender: ABBVIE
  Company Number: JP-ABBVIE-6124288

PATIENT
  Age: 28 Year
  Sex: Female

DRUGS (1)
  1. ASENAPINE MALEATE [Suspect]
     Active Substance: ASENAPINE MALEATE
     Indication: Product used for unknown indication
     Route: 060

REACTIONS (8)
  - Hospitalisation [Unknown]
  - Apathy [Unknown]
  - Sleep disorder [Unknown]
  - Decreased appetite [Unknown]
  - Fluid intake reduced [Unknown]
  - Dehydration [Unknown]
  - Pyrexia [Unknown]
  - Product administration error [Unknown]
